FAERS Safety Report 20985822 (Version 1)
Quarter: 2022Q2

REPORT INFORMATION
  Report Type: Spontaneous
  Country: IT (occurrence: IT)
  Receive Date: 20220621
  Receipt Date: 20220621
  Transmission Date: 20220721
  Serious: Yes (Other)
  Sender: FDA-Public Use
  Company Number: IT-MINISAL02-873048

PATIENT
  Age: 53 Year
  Sex: Male
  Weight: 65 kg

DRUGS (7)
  1. OXALIPLATIN [Suspect]
     Active Substance: OXALIPLATIN
     Indication: Product used for unknown indication
     Dosage: 145 MILLIGRAM, CYCLICAL
     Route: 042
     Dates: start: 20210927
  2. FLUOROURACIL [Suspect]
     Active Substance: FLUOROURACIL
     Indication: Product used for unknown indication
     Dosage: 690 MILLIGRAM
     Route: 040
     Dates: start: 20210927
  3. PANITUMUMAB [Suspect]
     Active Substance: PANITUMUMAB
     Indication: Neoplasm malignant
     Dosage: 390 MILLIGRAM, CYCLICAL
     Route: 042
     Dates: start: 20210927, end: 20211213
  4. CHLORPHENIRAMINE MALEATE [Concomitant]
     Active Substance: CHLORPHENIRAMINE MALEATE
     Indication: Product used for unknown indication
     Dosage: 10 MILLIGRAM
     Route: 042
     Dates: start: 20210927
  5. DEXAMETHASONE [Concomitant]
     Active Substance: DEXAMETHASONE
     Indication: Product used for unknown indication
     Dosage: 8 MILLIGRAM
     Route: 042
     Dates: start: 20210927
  6. GRANISETRON HYDROCHLORIDE [Concomitant]
     Active Substance: GRANISETRON HYDROCHLORIDE
     Indication: Product used for unknown indication
     Dosage: 3 MILLIGRAM
     Route: 042
     Dates: start: 20210927
  7. OMEPRAZOLE [Concomitant]
     Active Substance: OMEPRAZOLE
     Indication: Product used for unknown indication
     Dosage: 20 MILLIGRAM
     Route: 048

REACTIONS (2)
  - Folliculitis [Unknown]
  - Neutropenia [Unknown]

NARRATIVE: CASE EVENT DATE: 20211213
